FAERS Safety Report 16638108 (Version 2)
Quarter: 2019Q3

REPORT INFORMATION
  Report Type: Spontaneous
  Country: IT (occurrence: IT)
  Receive Date: 20190726
  Receipt Date: 20190802
  Transmission Date: 20191004
  Serious: Yes (Hospitalization, Other)
  Sender: FDA-Public Use
  Company Number: PHHY2019IT174026

PATIENT
  Age: 65 Year
  Sex: Female

DRUGS (15)
  1. VOLTAREN [Suspect]
     Active Substance: DICLOFENAC SODIUM
     Indication: SCIATICA
  2. TORADOL [Suspect]
     Active Substance: KETOROLAC TROMETHAMINE
     Indication: SCIATICA
  3. TACHIPIRINA [Suspect]
     Active Substance: ACETAMINOPHEN
     Indication: BACK PAIN
     Dosage: UNK
     Route: 065
  4. SOLDESAM [Suspect]
     Active Substance: DEXAMETHASONE
     Indication: BACK PAIN
     Dosage: UNK
     Route: 065
  5. TACHIPIRINA [Suspect]
     Active Substance: ACETAMINOPHEN
     Indication: SCIATICA
  6. VOLTAREN [Suspect]
     Active Substance: DICLOFENAC SODIUM
     Indication: BACK PAIN
     Dosage: UNK
     Route: 065
  7. ROCEFIN [Suspect]
     Active Substance: CEFTRIAXONE SODIUM
     Indication: PRODUCT USED FOR UNKNOWN INDICATION
     Dosage: UNK
     Route: 065
  8. EFFERALGAN [Suspect]
     Active Substance: ACETAMINOPHEN
     Indication: PRODUCT USED FOR UNKNOWN INDICATION
     Dosage: UNK
     Route: 065
  9. SOLDESAM [Suspect]
     Active Substance: DEXAMETHASONE
     Indication: SCIATICA
  10. SIRDALUD [Suspect]
     Active Substance: TIZANIDINE
     Indication: SCIATICA
     Dosage: UNK
     Route: 065
  11. TORADOL [Suspect]
     Active Substance: KETOROLAC TROMETHAMINE
     Indication: BACK PAIN
     Dosage: UNK
     Route: 065
  12. MUSCORIL [Suspect]
     Active Substance: THIOCOLCHICOSIDE
     Indication: BACK PAIN
     Dosage: UNK
     Route: 065
  13. TACHIDOL [Suspect]
     Active Substance: ACETAMINOPHEN\CODEINE PHOSPHATE
     Indication: PRODUCT USED FOR UNKNOWN INDICATION
     Dosage: UNK UNK, BID
     Route: 065
  14. LYRICA [Suspect]
     Active Substance: PREGABALIN
     Indication: PRODUCT USED FOR UNKNOWN INDICATION
     Dosage: UNK UNK, BID
     Route: 065
  15. MUSCORIL [Suspect]
     Active Substance: THIOCOLCHICOSIDE
     Indication: SCIATICA

REACTIONS (13)
  - Pain [Unknown]
  - Musculoskeletal pain [Recovered/Resolved]
  - Protein deficiency [Unknown]
  - Pain in extremity [Unknown]
  - Drug ineffective [Unknown]
  - Hernia [Unknown]
  - Peripheral swelling [Unknown]
  - Gait disturbance [Unknown]
  - Asthenia [Unknown]
  - Myalgia [Unknown]
  - Tremor [Unknown]
  - Discomfort [Unknown]
  - Paraesthesia [Unknown]
